FAERS Safety Report 9238191 (Version 1)
Quarter: 2013Q2

REPORT INFORMATION
  Report Type: Spontaneous
  Country: PT (occurrence: None)
  Receive Date: 20130416
  Receipt Date: 20130416
  Transmission Date: 20140414
  Serious: Yes (Death, Life-Threatening, Hospitalization)
  Sender: FDA-Public Use
  Company Number: 1574295

PATIENT
  Age: 69 Year
  Sex: Male
  Weight: 74 kg

DRUGS (1)
  1. OXALIPLATIN [Suspect]
     Indication: COLON NEOPLASM
     Dosage: 1 WEEK
     Route: 042
     Dates: start: 20120904, end: 20121010

REACTIONS (4)
  - Pulmonary toxicity [None]
  - Pneumonia [None]
  - Interstitial lung disease [None]
  - Septic shock [None]
